FAERS Safety Report 9922109 (Version 1)
Quarter: 2014Q1

REPORT INFORMATION
  Report Type: Spontaneous
  Country: UY (occurrence: US)
  Receive Date: 20140225
  Receipt Date: 20140225
  Transmission Date: 20141002
  Serious: Yes (Other)
  Sender: FDA-Public Use
  Company Number: US-TEVA-464871USA

PATIENT
  Sex: Female

DRUGS (1)
  1. TRAZODONE [Suspect]

REACTIONS (2)
  - Choking [Unknown]
  - Pain [Unknown]
